FAERS Safety Report 10073138 (Version 3)
Quarter: 2014Q2

REPORT INFORMATION
  Report Type: Report from Study
  Country: JP (occurrence: JP)
  Receive Date: 20140411
  Receipt Date: 20140606
  Transmission Date: 20141212
  Serious: Yes (Hospitalization)
  Sender: FDA-Public Use
  Company Number: JP-JNJFOC-20140407258

PATIENT
  Age: 14 Year
  Sex: Male
  Weight: 49 kg

DRUGS (5)
  1. INFLIXIMAB [Suspect]
     Indication: COLITIS ULCERATIVE
     Route: 042
     Dates: start: 20131125, end: 20140428
  2. IMURAN [Concomitant]
     Indication: COLITIS ULCERATIVE
     Route: 048
     Dates: start: 20140328
  3. BIO-THREE [Concomitant]
     Indication: COLITIS ULCERATIVE
     Dosage: DAILY DOSE 3 TAB AND DOSE FOR ONE TREATMENT 6 TAB
     Route: 048
     Dates: start: 20120125
  4. SAIREI-TO [Concomitant]
     Indication: COLITIS ULCERATIVE
     Dosage: DAILY DOSE 3G AND DOSE FOR ONE TREATMENT 6G
     Route: 048
     Dates: start: 20120125
  5. ALFAROL [Concomitant]
     Dosage: DAILY DOSE 3G AND DOSE FOR ONE TREATMENT 6G
     Route: 048
     Dates: start: 20120315

REACTIONS (1)
  - Enterocolitis [Recovered/Resolved]
